FAERS Safety Report 6025879-1 (Version None)
Quarter: 2009Q1

REPORT INFORMATION
  Report Type: 
  Country: None (occurrence: None)
  Receive Date: 20090102
  Receipt Date: 20081226
  Transmission Date: 20090719
  Serious: Yes (Hospitalization)
  Sender: FDA-Public Use
  Company Number: BR-BAYER-200824051LA

PATIENT
  Sex: Female

DRUGS (1)
  1. MAGNEVISTAN [Suspect]
     Indication: DRUG USE FOR UNKNOWN INDICATION
     Dates: start: 20081222, end: 20081222

REACTIONS (7)
  - DYSPNOEA [None]
  - ERYTHEMA [None]
  - FACE OEDEMA [None]
  - FEELING HOT [None]
  - MYDRIASIS [None]
  - PAIN IN EXTREMITY [None]
  - TACHYCARDIA [None]
